FAERS Safety Report 8113317-4 (Version None)
Quarter: 2012Q1

REPORT INFORMATION
  Report Type: 
  Country: None (occurrence: None)
  Receive Date: 20120203
  Receipt Date: 20120126
  Transmission Date: 20120608
  Serious: Yes (Hospitalization)
  Sender: FDA-Public Use
  Company Number: PHHY2011FR107232

PATIENT
  Age: 50 Year
  Sex: Male

DRUGS (4)
  1. OSLIF BREEZHALER [Suspect]
     Indication: BRONCHIAL DISORDER
  2. PYOSTACINE [Concomitant]
     Dosage: 2 DF, TID
     Route: 048
  3. ACETAMINOPHEN [Concomitant]
     Dosage: 1 DF, TID
     Route: 048
  4. OSLIF BREEZHALER [Suspect]
     Indication: CHRONIC OBSTRUCTIVE PULMONARY DISEASE
     Dosage: 150 UG, DAILY
     Dates: start: 20111021, end: 20111022

REACTIONS (2)
  - MALAISE [None]
  - PALPITATIONS [None]
